FAERS Safety Report 16115437 (Version 2)
Quarter: 2019Q1

REPORT INFORMATION
  Report Type: Report from Study
  Country: US (occurrence: US)
  Receive Date: 20190325
  Receipt Date: 20190326
  Transmission Date: 20190418
  Serious: Yes (Life-Threatening, Hospitalization, Other)
  Sender: FDA-Public Use
  Company Number: PHHY2019US066723

PATIENT
  Age: 17 Year
  Sex: Male

DRUGS (8)
  1. RANITIDINE. [Concomitant]
     Active Substance: RANITIDINE
     Indication: STILL^S DISEASE
     Dosage: 150 MG, UNK
     Route: 065
     Dates: start: 20160907, end: 20161121
  2. MELOXICAM. [Concomitant]
     Active Substance: MELOXICAM
     Indication: STILL^S DISEASE
     Dosage: 15 MG, UNK
     Route: 065
     Dates: start: 20170130, end: 20170612
  3. MELOXICAM. [Concomitant]
     Active Substance: MELOXICAM
     Dosage: 7.5 MG, UNK
     Route: 065
     Dates: start: 20170612, end: 20170911
  4. FOLIC ACID. [Concomitant]
     Active Substance: FOLIC ACID
     Indication: STILL^S DISEASE
     Dosage: 1 MG, UNK
     Route: 065
     Dates: start: 20171211, end: 20181026
  5. METHOTREXATE SODIUM. [Suspect]
     Active Substance: METHOTREXATE SODIUM
     Indication: STILL^S DISEASE
     Dosage: 25 MG, UNK
     Route: 065
     Dates: start: 20160926, end: 20181026
  6. INDOMETHACIN. [Concomitant]
     Active Substance: INDOMETHACIN
     Indication: STILL^S DISEASE
     Dosage: 50 MG, UNK
     Route: 065
     Dates: start: 20160908, end: 201610
  7. ILARIS [Suspect]
     Active Substance: CANAKINUMAB
     Indication: STILL^S DISEASE
     Dosage: 300 MG, UNK
     Route: 065
     Dates: start: 20170612, end: 20181026
  8. NAPROXEN. [Concomitant]
     Active Substance: NAPROXEN
     Indication: STILL^S DISEASE
     Dosage: 500 MG, UNK
     Route: 065
     Dates: start: 20160907, end: 20160908

REACTIONS (5)
  - Gastrointestinal viral infection [Recovered/Resolved]
  - Duodenal ulcer perforation [Recovered/Resolved]
  - Haemophagocytic lymphohistiocytosis [Recovered/Resolved]
  - Histoplasmosis [Recovered/Resolved]
  - Abscess [Recovered/Resolved]

NARRATIVE: CASE EVENT DATE: 20181027
